FAERS Safety Report 9531914 (Version 1)
Quarter: 2013Q3

REPORT INFORMATION
  Report Type: Spontaneous
  Country: US (occurrence: None)
  Receive Date: 20130917
  Receipt Date: 20130917
  Transmission Date: 20140515
  Serious: Yes (Other)
  Sender: FDA-Public Use
  Company Number: None

PATIENT
  Age: 50 Year
  Sex: Male
  Weight: 171.01 kg

DRUGS (1)
  1. BUPROPION SR [Suspect]
     Indication: SMOKING CESSATION THERAPY
     Dosage: 1 TAB
     Route: 048

REACTIONS (2)
  - Depression [None]
  - Thinking abnormal [None]
